FAERS Safety Report 21934656 (Version 1)
Quarter: 2023Q1

REPORT INFORMATION
  Report Type: Other
  Country: DE (occurrence: DE)
  Receive Date: 20230201
  Receipt Date: 20230201
  Transmission Date: 20230418
  Serious: Yes (Death)
  Sender: FDA-Public Use
  Company Number: DE-Bion-011105

PATIENT
  Age: 39 Year
  Sex: Female

DRUGS (2)
  1. NIMODIPINE [Suspect]
     Active Substance: NIMODIPINE
     Indication: Cerebral vasoconstriction
  2. MILRINONE [Concomitant]
     Active Substance: MILRINONE
     Indication: Cerebral vasoconstriction

REACTIONS (1)
  - Drug ineffective [Fatal]
